FAERS Safety Report 4603448-5 (Version None)
Quarter: 2005Q1

REPORT INFORMATION
  Report Type: 
  Country: None (occurrence: None)
  Receive Date: 20050309
  Receipt Date: 20050303
  Transmission Date: 20050727
  Serious: Yes (Other)
  Sender: FDA-Public Use
  Company Number: US-MERCK-0503USA00803

PATIENT
  Sex: Male

DRUGS (4)
  1. VIOXX [Suspect]
     Route: 048
     Dates: start: 19990902, end: 20010122
  2. VIOXX [Suspect]
     Route: 048
     Dates: start: 20020622, end: 20021015
  3. VIOXX [Suspect]
     Route: 048
     Dates: start: 20030527, end: 20030902
  4. VIOXX [Suspect]
     Route: 048
     Dates: start: 20040212, end: 20040309

REACTIONS (1)
  - CEREBROVASCULAR ACCIDENT [None]
